FAERS Safety Report 9173242 (Version 1)
Quarter: 2013Q1

REPORT INFORMATION
  Report Type: Spontaneous
  Country: US (occurrence: None)
  Receive Date: 20130319
  Receipt Date: 20130319
  Transmission Date: 20140127
  Serious: Yes (Other)
  Sender: FDA-Public Use
  Company Number: None

PATIENT
  Age: 61 Year
  Sex: Female
  Weight: 70.31 kg

DRUGS (1)
  1. OMNIPAQUE [Suspect]
     Indication: SPINAL MYELOGRAM
     Dates: start: 20130226, end: 20130226

REACTIONS (8)
  - Pain [None]
  - Headache [None]
  - Neck pain [None]
  - Back pain [None]
  - Hypertension [None]
  - Meningitis [None]
  - Neuralgia [None]
  - Product quality issue [None]
